FAERS Safety Report 16555110 (Version 2)
Quarter: 2019Q3

REPORT INFORMATION
  Report Type: Spontaneous
  Country: CZ (occurrence: CZ)
  Receive Date: 20190710
  Receipt Date: 20190716
  Transmission Date: 20191004
  Serious: Yes (Other)
  Sender: FDA-Public Use
  Company Number: CZ-MYLANLABS-2019M1010198

PATIENT
  Age: 65 Year
  Sex: Female

DRUGS (5)
  1. GLIBENCLAMIDE [Interacting]
     Active Substance: GLYBURIDE
     Dosage: 2 MILLIGRAM
     Route: 048
  2. GLIBENCLAMIDE [Interacting]
     Active Substance: GLYBURIDE
     Indication: TYPE 2 DIABETES MELLITUS
     Dosage: 2 MILLIGRAM, QD
     Route: 048
  3. METFORMIN [Interacting]
     Active Substance: METFORMIN HYDROCHLORIDE
     Indication: TYPE 2 DIABETES MELLITUS
     Dosage: UNK
     Route: 048
  4. GLIMEPIRIDE. [Suspect]
     Active Substance: GLIMEPIRIDE
     Indication: TYPE 2 DIABETES MELLITUS
     Dosage: UNK
  5. GLIMEPIRIDE. [Interacting]
     Active Substance: GLIMEPIRIDE
     Dosage: 2 MILLIGRAM, QD
     Route: 065

REACTIONS (7)
  - Glycosylated haemoglobin increased [Recovered/Resolved]
  - Hyperglycaemia [Recovering/Resolving]
  - Hyperhidrosis [Recovered/Resolved]
  - Potentiating drug interaction [Unknown]
  - Fatigue [Recovered/Resolved]
  - Asthenia [Recovered/Resolved]
  - Hypoglycaemia [Recovered/Resolved]
